FAERS Safety Report 7701604-0 (Version None)
Quarter: 2011Q3

REPORT INFORMATION
  Report Type: 
  Country: None (occurrence: None)
  Receive Date: 20110822
  Receipt Date: 20110812
  Transmission Date: 20111222
  Serious: Yes (Other)
  Sender: FDA-Public Use
  Company Number: RU-ASTRAZENECA-2011SE48791

PATIENT
  Age: 59 Year
  Sex: Female
  Weight: 125 kg

DRUGS (3)
  1. ATACAND [Suspect]
     Indication: HYPERTENSION
     Route: 048
     Dates: start: 20110729, end: 20110803
  2. ATACAND [Suspect]
     Route: 048
     Dates: start: 20110811, end: 20110812
  3. DIPROSPAN (BETAMETHASONE SODIUM PHOSPHATE + BETAMETHASONE DIPROPIONAT) [Concomitant]
     Indication: KNEE DEFORMITY
     Route: 014
     Dates: start: 20110705, end: 20110725

REACTIONS (2)
  - SUPRAVENTRICULAR TACHYARRHYTHMIA [None]
  - RAYNAUD'S PHENOMENON [None]
